FAERS Safety Report 13944326 (Version 1)
Quarter: 2017Q3

REPORT INFORMATION
  Report Type: Spontaneous
  Country: US (occurrence: US)
  Receive Date: 20170907
  Receipt Date: 20170907
  Transmission Date: 20171128
  Serious: Yes (Hospitalization)
  Sender: FDA-Public Use
  Company Number: US-ROCHE-1350523

PATIENT
  Age: 64 Year
  Sex: Male
  Weight: 105.5 kg

DRUGS (10)
  1. TOPROL XL [Concomitant]
     Active Substance: METOPROLOL SUCCINATE
  2. UROXATRAL [Concomitant]
     Active Substance: ALFUZOSIN HYDROCHLORIDE
  3. ZOMIG [Concomitant]
     Active Substance: ZOLMITRIPTAN
  4. RITUXAN [Suspect]
     Active Substance: RITUXIMAB
     Route: 042
     Dates: start: 20121016
  5. HYZAAR [Concomitant]
     Active Substance: HYDROCHLOROTHIAZIDE\LOSARTAN POTASSIUM
  6. RITUXAN [Suspect]
     Active Substance: RITUXIMAB
     Indication: IMMUNOGLOBULIN G4 RELATED DISEASE
     Route: 042
     Dates: start: 20121003
  7. BUDESONIDE INHALATION [Concomitant]
     Active Substance: BUDESONIDE
     Dosage: NEBULIZER
     Route: 065
  8. SIMVASTATIN. [Concomitant]
     Active Substance: SIMVASTATIN
  9. AVODART [Concomitant]
     Active Substance: DUTASTERIDE
  10. COLAZAL [Concomitant]
     Active Substance: BALSALAZIDE DISODIUM

REACTIONS (1)
  - Sinusitis [Recovered/Resolved]

NARRATIVE: CASE EVENT DATE: 20131212
